FAERS Safety Report 23318330 (Version 1)
Quarter: 2023Q4

REPORT INFORMATION
  Report Type: Other
  Country: IE (occurrence: None)
  Receive Date: 20231220
  Receipt Date: 20231220
  Transmission Date: 20240109
  Serious: Yes (Other)
  Sender: FDA-Public Use
  Company Number: IE-ROCHE-3471773

PATIENT
  Sex: Female

DRUGS (1)
  1. OCREVUS [Suspect]
     Active Substance: OCRELIZUMAB
     Indication: Product used for unknown indication
     Dosage: 300MGS X 1
     Route: 042

REACTIONS (3)
  - Throat tightness [Recovering/Resolving]
  - Abnormal sensation in eye [Recovering/Resolving]
  - Ear discomfort [Recovering/Resolving]
